FAERS Safety Report 10633758 (Version 2)
Quarter: 2014Q4

REPORT INFORMATION
  Report Type: Spontaneous
  Country: BR (occurrence: BR)
  Receive Date: 20141205
  Receipt Date: 20141205
  Transmission Date: 20150529
  Serious: Yes (Death)
  Sender: FDA-Public Use
  Company Number: BR-SANOFI-AVENTIS-2013SA018221

PATIENT
  Age: 86 Year
  Sex: Female

DRUGS (4)
  1. CLIKSTAR [Concomitant]
     Active Substance: CLIKSTAR
     Indication: DEVICE THERAPY
  2. AUTOPEN 24 [Suspect]
     Active Substance: DEVICE
     Indication: DEVICE THERAPY
  3. LANTUS [Suspect]
     Active Substance: INSULIN GLARGINE
     Indication: DIABETES MELLITUS
     Dosage: 3ML
     Route: 065
  4. AUTOPEN 24 [Suspect]
     Active Substance: DEVICE
     Indication: DEVICE THERAPY

REACTIONS (2)
  - Death [Fatal]
  - Hyperglycaemia [Unknown]

NARRATIVE: CASE EVENT DATE: 20130213
